FAERS Safety Report 14649786 (Version 3)
Quarter: 2018Q2

REPORT INFORMATION
  Report Type: Report from Study
  Country: FR (occurrence: FR)
  Receive Date: 20180316
  Receipt Date: 20180514
  Transmission Date: 20180711
  Serious: Yes (Hospitalization, Other)
  Sender: FDA-Public Use
  Company Number: FR-PFIZER INC-2018101319

PATIENT
  Age: 3 Year
  Sex: Female

DRUGS (19)
  1. ONCASPAR [Suspect]
     Active Substance: PEGASPARGASE
     Indication: ACUTE LYMPHOCYTIC LEUKAEMIA
     Dosage: 1425 IU, UNK
     Route: 042
     Dates: start: 20170928, end: 20171113
  2. CYTARABINE. [Suspect]
     Active Substance: CYTARABINE
     Indication: ACUTE LYMPHOCYTIC LEUKAEMIA
     Dosage: 30 MG, UNK
     Route: 037
     Dates: start: 20170928, end: 20171027
  3. CYTARABINE. [Suspect]
     Active Substance: CYTARABINE
     Dosage: 174 MG, UNK
     Route: 065
     Dates: start: 20171027, end: 20171030
  4. DOXORUBICIN HCL [Suspect]
     Active Substance: DOXORUBICIN HYDROCHLORIDE
     Indication: ACUTE LYMPHOCYTIC LEUKAEMIA
     Dosage: 14.4 MG, UNK
     Route: 042
     Dates: start: 20170925, end: 20171009
  5. METHOTREXATE SODIUM. [Suspect]
     Active Substance: METHOTREXATE SODIUM
     Dosage: 15 MG, UNK
     Route: 048
     Dates: start: 20171211, end: 20171226
  6. XALUPRINE [Suspect]
     Active Substance: MERCAPTOPURINE
     Dosage: 14 MG, UNK
     Route: 048
     Dates: start: 20180116
  7. METHOTREXATE SODIUM. [Suspect]
     Active Substance: METHOTREXATE SODIUM
     Dosage: 7.5 UNK, UNK
     Route: 048
     Dates: start: 20180116
  8. CORTICOSTEROID NOS [Suspect]
     Active Substance: CORTICOSTEROID NOS
     Indication: ACUTE LYMPHOCYTIC LEUKAEMIA
     Dosage: 15 MG, UNK
     Route: 037
     Dates: start: 20170928, end: 20171027
  9. 6-MERCAPTOPURINE MONOHYDRATE [Suspect]
     Active Substance: MERCAPTOPURINE
     Indication: ACUTE LYMPHOCYTIC LEUKAEMIA
     Dosage: 490 MG, UNK
     Route: 065
     Dates: start: 20171025, end: 20171112
  10. CYCLOPHOSPHAMIDE. [Suspect]
     Active Substance: CYCLOPHOSPHAMIDE
     Indication: ACUTE LYMPHOCYTIC LEUKAEMIA
     Dosage: 580 MG, UNK
     Route: 065
     Dates: start: 20171025, end: 20171112
  11. METHOTREXATE SODIUM. [Suspect]
     Active Substance: METHOTREXATE SODIUM
     Dosage: 300 UNK, UNK
     Route: 042
     Dates: start: 20171211, end: 20171211
  12. XALUPRINE [Suspect]
     Active Substance: MERCAPTOPURINE
     Dosage: 30 MG, UNK
     Route: 048
     Dates: start: 20171211, end: 20171227
  13. VINCRISTINE SULFATE. [Suspect]
     Active Substance: VINCRISTINE SULFATE
     Indication: ACUTE LYMPHOCYTIC LEUKAEMIA
     Dosage: 0.86 MG, UNK
     Route: 042
     Dates: start: 20170925, end: 20171009
  14. VINCRISTINE SULFATE. [Suspect]
     Active Substance: VINCRISTINE SULFATE
     Dosage: 0.87 MG, UNK
     Route: 042
     Dates: start: 20171113, end: 20171120
  15. METHOTREXATE SODIUM. [Suspect]
     Active Substance: METHOTREXATE SODIUM
     Dosage: 12 MG, UNK
     Route: 037
     Dates: start: 20171219, end: 20171219
  16. DEXAMETHASONE. [Suspect]
     Active Substance: DEXAMETHASONE
     Indication: ACUTE LYMPHOCYTIC LEUKAEMIA
     Dosage: 42 MG, UNK
     Route: 065
     Dates: start: 20170925, end: 20171001
  17. DEXAMETHASONE. [Suspect]
     Active Substance: DEXAMETHASONE
     Dosage: 42 MG, UNK
     Dates: start: 20171009, end: 20171015
  18. CYTARABINE. [Suspect]
     Active Substance: CYTARABINE
     Dosage: 174 MG, UNK
     Dates: start: 20171103, end: 20171106
  19. METHOTREXATE SODIUM. [Suspect]
     Active Substance: METHOTREXATE SODIUM
     Indication: ACUTE LYMPHOCYTIC LEUKAEMIA
     Dosage: 12 MG, UNK
     Route: 037
     Dates: start: 20170928, end: 20171027

REACTIONS (4)
  - Respiratory syncytial virus infection [Recovered/Resolved]
  - Febrile bone marrow aplasia [Recovered/Resolved]
  - Interstitial lung disease [Recovered/Resolved]
  - Pulmonary alveolar haemorrhage [Recovered/Resolved]

NARRATIVE: CASE EVENT DATE: 20171227
